FAERS Safety Report 14295314 (Version 1)
Quarter: 2017Q4

REPORT INFORMATION
  Report Type: Spontaneous
  Country: US (occurrence: US)
  Receive Date: 20171215
  Receipt Date: 20171215
  Transmission Date: 20180321
  Serious: No
  Sender: FDA-Public Use
  Company Number: None

PATIENT
  Sex: Female

DRUGS (1)
  1. TREMFYA [Suspect]
     Active Substance: GUSELKUMAB
     Indication: RHEUMATOID ARTHRITIS
     Dosage: 100MG EVERY 8 WEEKS SQ
     Route: 058
     Dates: start: 201711

REACTIONS (3)
  - Paraesthesia [None]
  - Drug ineffective [None]
  - Pruritus [None]
